FAERS Safety Report 10220501 (Version 2)
Quarter: 2014Q2

REPORT INFORMATION
  Report Type: Spontaneous
  Country: JP (occurrence: JP)
  Receive Date: 20140606
  Receipt Date: 20140606
  Transmission Date: 20141212
  Serious: Yes (Death)
  Sender: FDA-Public Use
  Company Number: JP-BRISTOL-MYERS SQUIBB COMPANY-17103078

PATIENT
  Age: 82 Year
  Sex: Female

DRUGS (2)
  1. ORENCIA FOR INJ 250 MG/VIAL [Suspect]
     Indication: RHEUMATOID ARTHRITIS
     Dosage: NO OF INF:3?LAST DOSE ON 12SEP2012
     Dates: start: 20120912, end: 20120912
  2. PREDNISOLONE [Concomitant]
     Dates: start: 20120912, end: 20121021

REACTIONS (1)
  - Acute myocardial infarction [Fatal]
